FAERS Safety Report 16925307 (Version 1)
Quarter: 2019Q4

REPORT INFORMATION
  Report Type: Spontaneous
  Country: US (occurrence: US)
  Receive Date: 20191016
  Receipt Date: 20191016
  Transmission Date: 20200122
  Serious: No
  Sender: FDA-Public Use
  Company Number: US-GLAXOSMITHKLINE-US2019183975

PATIENT
  Sex: Male

DRUGS (1)
  1. ABREVA [Suspect]
     Active Substance: DOCOSANOL
     Indication: NASAL DISCOMFORT
     Dosage: UNK

REACTIONS (2)
  - Product administered at inappropriate site [Unknown]
  - Product use in unapproved indication [Unknown]
